FAERS Safety Report 8823037 (Version 1)
Quarter: 2012Q4

REPORT INFORMATION
  Report Type: Report from Study
  Country: BR (occurrence: BR)
  Receive Date: 20121003
  Receipt Date: 20121003
  Transmission Date: 20130627
  Serious: Yes (Hospitalization)
  Sender: FDA-Public Use
  Company Number: BR-ROCHE-1135192

PATIENT
  Sex: Female
  Weight: 65 kg

DRUGS (7)
  1. MABTHERA [Suspect]
     Indication: PRODUCT USED FOR UNKNOWN INDICATION
     Route: 042
     Dates: start: 20091101
  2. MABTHERA [Suspect]
     Route: 065
     Dates: start: 20100901
  3. MABTHERA [Suspect]
     Route: 065
     Dates: start: 20101001
  4. MABTHERA [Suspect]
     Route: 065
     Dates: start: 20110622
  5. MABTHERA [Suspect]
     Route: 065
     Dates: start: 20110706
  6. MABTHERA [Suspect]
     Route: 065
     Dates: start: 20120329
  7. MABTHERA [Suspect]
     Route: 065
     Dates: start: 20120416

REACTIONS (4)
  - Cellulitis [Recovered/Resolved]
  - Skin disorder [Recovered/Resolved]
  - Laceration [Recovered/Resolved]
  - Cardiac disorder [Recovered/Resolved]
